FAERS Safety Report 25552169 (Version 1)
Quarter: 2025Q3

REPORT INFORMATION
  Report Type: Spontaneous
  Country: EU (occurrence: EU)
  Receive Date: 20250715
  Receipt Date: 20250715
  Transmission Date: 20251020
  Serious: Yes (Other)
  Sender: CELLTRION
  Company Number: None

PATIENT

DRUGS (1)
  1. ADALIMUMAB [Suspect]
     Active Substance: ADALIMUMAB
     Indication: Psoriasis
     Dosage: 40 MG, EVERY 2 WEEKS
     Route: 065
     Dates: start: 20230601, end: 20231201

REACTIONS (2)
  - Diplopia [Not Recovered/Not Resolved]
  - Demyelination [Recovering/Resolving]

NARRATIVE: CASE EVENT DATE: 20230901
